FAERS Safety Report 10662356 (Version 1)
Quarter: 2014Q4

REPORT INFORMATION
  Report Type: Spontaneous
  Country: US (occurrence: None)
  Receive Date: 20141216
  Receipt Date: 20141216
  Transmission Date: 20150529
  Serious: Yes (Other)
  Sender: FDA-Public Use
  Company Number: NSR_01720_2014

PATIENT
  Sex: Male

DRUGS (1)
  1. BACLOFEN. [Suspect]
     Active Substance: BACLOFEN
     Indication: MUSCLE SPASMS
     Dosage: EVERY NIGHT
     Route: 048

REACTIONS (5)
  - Depression [None]
  - Somnolence [None]
  - Feeling abnormal [None]
  - Thinking abnormal [None]
  - Suicidal ideation [None]
